FAERS Safety Report 6441868-7 (Version None)
Quarter: 2009Q4

REPORT INFORMATION
  Report Type: 
  Country: None (occurrence: None)
  Receive Date: 20091116
  Receipt Date: 20091105
  Transmission Date: 20100525
  Serious: Yes (Other)
  Sender: FDA-Public Use
  Company Number: US-JNJFOC-20091102250

PATIENT
  Sex: Male
  Weight: 37.7 kg

DRUGS (6)
  1. INFLIXIMAB [Suspect]
     Indication: INFLAMMATORY BOWEL DISEASE
     Route: 042
  2. 5-AMINOSALICYLIC ACID [Concomitant]
  3. PREDNISONE [Concomitant]
  4. IRON [Concomitant]
  5. VITAMIN D [Concomitant]
  6. TYLENOL (CAPLET) [Concomitant]

REACTIONS (1)
  - DEHYDRATION [None]
